FAERS Safety Report 5466072-0 (Version None)
Quarter: 2007Q3

REPORT INFORMATION
  Report Type: 
  Country: None (occurrence: None)
  Receive Date: 20070919
  Receipt Date: 20070910
  Transmission Date: 20080115
  Serious: Yes (Death, Life-Threatening, Disabling, Other)
  Sender: FDA-Public Use
  Company Number: 2006-03306

PATIENT
  Age: 71 Year
  Sex: Male
  Weight: 48 kg

DRUGS (30)
  1. VELCADE [Suspect]
     Indication: MULTIPLE MYELOMA
     Dosage: 1.00 MG/M2; INTRAVENOUS, 1.40 MG; INTRAVENOUS
     Route: 042
     Dates: start: 20061204, end: 20070104
  2. VELCADE [Suspect]
     Indication: MULTIPLE MYELOMA
     Dosage: 1.00 MG/M2; INTRAVENOUS, 1.40 MG; INTRAVENOUS
     Route: 042
     Dates: start: 20070219, end: 20070502
  3. ZOMETA [Concomitant]
  4. SODIUM BICARBONATE [Concomitant]
  5. NEUTROGIN [Concomitant]
  6. AMIKACIN SULFATE [Concomitant]
  7. LASIX [Concomitant]
  8. VORICONAZOLE (VORICONAZOLE) [Concomitant]
  9. RABEPRAZOLE SODIUM [Concomitant]
  10. RENIVACE (ENLAPRIL MALEATE) [Concomitant]
  11. LEVOFLOXACIN [Concomitant]
  12. ALLOPURINOL [Concomitant]
  13. BAKTAR (SULFAMETHOXAZOLE, TRIMETHOPRIM) [Concomitant]
  14. MAGNESIUM OXIDE (MAGNESIUM OXIDE) TABLET [Concomitant]
  15. HACHIAZULE (SODIUM BICARBONATE, SODIUM GUALENATE) [Concomitant]
  16. ADOFEED (FLURBIPROFEN) [Concomitant]
  17. XYLOCAINE [Concomitant]
  18. DEXAMETHASONE 0.5MG TAB [Concomitant]
  19. ISODINE (POVIDONE-IODINE) [Concomitant]
  20. FIRSTCIN (CEFOZOPRAN HYDROCHLORIDE) [Concomitant]
  21. GAMIMUNE [Concomitant]
  22. PLATELETS [Concomitant]
  23. RED BLOOD CELLS [Concomitant]
  24. SLOW-K [Concomitant]
  25. CALCIUM LACTATE (CALCIUM LACTATE) [Concomitant]
  26. PREDNISOLONE [Concomitant]
  27. SOLU-MEDROL [Concomitant]
  28. TIENAM (IMIPENEM, CILASTATIN) [Concomitant]
  29. FOSCAVIR [Concomitant]
  30. ALDACTONE [Concomitant]

REACTIONS (29)
  - ALANINE AMINOTRANSFERASE INCREASED [None]
  - ASPARTATE AMINOTRANSFERASE INCREASED [None]
  - BASOPHIL COUNT DECREASED [None]
  - BLOOD ALKALINE PHOSPHATASE DECREASED [None]
  - BLOOD GLUCOSE INCREASED [None]
  - BLOOD UREA INCREASED [None]
  - BLOOD URIC ACID INCREASED [None]
  - COMPUTERISED TOMOGRAM THORAX ABNORMAL [None]
  - CONDITION AGGRAVATED [None]
  - FEBRILE NEUTROPENIA [None]
  - FUNGAL DNA TEST POSITIVE [None]
  - FUNGUS SEROLOGY TEST POSITIVE [None]
  - HYPERGLYCAEMIA [None]
  - HYPERKALAEMIA [None]
  - HYPOCALCAEMIA [None]
  - HYPONATRAEMIA [None]
  - INTERSTITIAL LUNG DISEASE [None]
  - LYMPHOCYTE COUNT DECREASED [None]
  - MALIGNANT NEOPLASM PROGRESSION [None]
  - MOTOR DYSFUNCTION [None]
  - MULTIPLE MYELOMA [None]
  - NEUROPATHY PERIPHERAL [None]
  - NO THERAPEUTIC RESPONSE [None]
  - PLATELET COUNT DECREASED [None]
  - PLEURAL EFFUSION [None]
  - PNEUMONIA BACTERIAL [None]
  - PROTEIN TOTAL INCREASED [None]
  - PULMONARY MASS [None]
  - WHITE BLOOD CELL COUNT DECREASED [None]
